FAERS Safety Report 8961665 (Version 1)
Quarter: 2012Q4

REPORT INFORMATION
  Report Type: Report from Study
  Country: CA (occurrence: CA)
  Receive Date: 20121213
  Receipt Date: 20121213
  Transmission Date: 20130627
  Serious: Yes (Hospitalization)
  Sender: FDA-Public Use
  Company Number: CA-JNJFOC-20121203508

PATIENT
  Sex: Female
  Weight: 89.81 kg

DRUGS (2)
  1. REMICADE [Suspect]
     Indication: CROHN^S DISEASE
     Dosage: ^sem^0-2
     Route: 042
     Dates: start: 20121025, end: 20121106
  2. REMICADE [Suspect]
     Indication: CROHN^S DISEASE
     Route: 042

REACTIONS (3)
  - Fistula [Recovering/Resolving]
  - Abscess [Recovering/Resolving]
  - Drug ineffective [Recovering/Resolving]
